FAERS Safety Report 20976095 (Version 2)
Quarter: 2022Q2

REPORT INFORMATION
  Report Type: Spontaneous
  Country: US (occurrence: US)
  Receive Date: 20220617
  Receipt Date: 20220622
  Transmission Date: 20220721
  Serious: No
  Sender: FDA-Public Use
  Company Number: US-PFIZER INC-202200845712

PATIENT
  Age: 70 Year
  Sex: Female
  Weight: 78.02 kg

DRUGS (2)
  1. PAXLOVID [Suspect]
     Active Substance: NIRMATRELVIR\RITONAVIR
     Indication: COVID-19 treatment
     Dosage: [PF-07321332 300 MG]/[RITONAVIR 100 MG]; 2X/DAY
     Route: 048
  2. LEVOXINE [LEVOTHYROXINE SODIUM] [Concomitant]
     Dosage: 0.5 MG, 1X/DAY

REACTIONS (7)
  - Headache [Unknown]
  - Diarrhoea [Unknown]
  - Muscle spasms [Unknown]
  - Abdominal pain upper [Unknown]
  - Feeding disorder [Unknown]
  - Vision blurred [Unknown]
  - Eye pain [Unknown]
